FAERS Safety Report 23695472 (Version 9)
Quarter: 2024Q2

REPORT INFORMATION
  Report Type: Spontaneous
  Country: JP (occurrence: JP)
  Receive Date: 20240402
  Receipt Date: 20240618
  Transmission Date: 20240716
  Serious: Yes (Death, Life-Threatening, Hospitalization, Disabling, Other)
  Sender: FDA-Public Use
  Company Number: JP-KISSEI-TV20240227_P_1

PATIENT
  Age: 81 Year
  Sex: Male
  Weight: 51.8 kg

DRUGS (13)
  1. TAVNEOS [Suspect]
     Active Substance: AVACOPAN
     Indication: Microscopic polyangiitis
     Dosage: 30 MILLIGRAM, Q12H
     Route: 048
     Dates: start: 20240124, end: 20240305
  2. SULFAMETHOXAZOLE\TRIMETHOPRIM [Suspect]
     Active Substance: SULFAMETHOXAZOLE\TRIMETHOPRIM
     Indication: Microscopic polyangiitis
     Dosage: 12 GRAM, Q12H
     Route: 048
     Dates: start: 20240106, end: 20240314
  3. PREDNISOLONE [Concomitant]
     Active Substance: PREDNISOLONE
     Indication: Microscopic polyangiitis
     Dosage: 5 MILLIGRAM, QD
     Dates: start: 20231230
  4. PREDNISOLONE [Concomitant]
     Active Substance: PREDNISOLONE
     Indication: Vanishing bile duct syndrome
     Dosage: PERORAL MEDICINE
     Dates: start: 20240329
  5. RITUXIMAB [Concomitant]
     Active Substance: RITUXIMAB
     Indication: Microscopic polyangiitis
     Dosage: 500 MILLIGRAM, QD
     Route: 040
     Dates: start: 20240112, end: 20240202
  6. VONOPRAZAN FUMARATE [Concomitant]
     Active Substance: VONOPRAZAN FUMARATE
     Indication: Chronic gastritis
     Dosage: 20 MILLIGRAM, QD
     Route: 048
     Dates: start: 20240104, end: 20240314
  7. ALFACALCIDOL [Concomitant]
     Active Substance: ALFACALCIDOL
     Indication: Microscopic polyangiitis
     Dosage: 0.25 MICROGRAM, QD
     Route: 048
     Dates: start: 20231229, end: 20240314
  8. FOLIC ACID [Concomitant]
     Active Substance: FOLIC ACID
     Indication: Folate deficiency
     Dosage: 5 MILLIGRAM, QD
     Route: 048
     Dates: start: 20240104, end: 20240314
  9. EXELON [Concomitant]
     Active Substance: RIVASTIGMINE TARTRATE
     Indication: Dementia
     Dosage: 9 MILLIGRAM, QD
     Route: 062
     Dates: start: 20240327
  10. LAGNOS NF [Concomitant]
     Indication: Constipation
     Dosage: PERORAL MEDICINE
     Route: 048
     Dates: start: 20240104
  11. AMITIZA [Concomitant]
     Active Substance: LUBIPROSTONE
     Dosage: UNK
     Route: 048
  12. ATORVASTATIN [Concomitant]
     Active Substance: ATORVASTATIN
     Dosage: UNK
     Route: 048
  13. SILODOSIN OD [Concomitant]
     Dosage: UNK
     Route: 048

REACTIONS (5)
  - Vanishing bile duct syndrome [Not Recovered/Not Resolved]
  - Bacteraemia [Fatal]
  - Emphysematous cystitis [Unknown]
  - Septic shock [Fatal]
  - Cytomegalovirus infection [Unknown]

NARRATIVE: CASE EVENT DATE: 20240305
